FAERS Safety Report 26096032 (Version 1)
Quarter: 2025Q4

REPORT INFORMATION
  Report Type: Spontaneous
  Country: IN (occurrence: IN)
  Receive Date: 20251127
  Receipt Date: 20251127
  Transmission Date: 20260118
  Serious: Yes (Hospitalization)
  Sender: AJANTA PHARMA USA INC
  Company Number: IN-AJANTA-2025AJA00157

PATIENT
  Age: 18 Year
  Sex: Female

DRUGS (7)
  1. OXCARBAZEPINE [Suspect]
     Active Substance: OXCARBAZEPINE
     Indication: Occipital lobe epilepsy
  2. OXCARBAZEPINE [Suspect]
     Active Substance: OXCARBAZEPINE
  3. OXCARBAZEPINE [Suspect]
     Active Substance: OXCARBAZEPINE
     Dosage: OCCASIONALLY
  4. OXCARBAZEPINE [Suspect]
     Active Substance: OXCARBAZEPINE
     Dosage: MORE THAN 1 TABLET AT A TIME
  5. OXCARBAZEPINE [Suspect]
     Active Substance: OXCARBAZEPINE
     Dosage: EXTRA TABLETS
  6. BRIVARACETAM [Concomitant]
     Active Substance: BRIVARACETAM
     Indication: Occipital lobe epilepsy
  7. CLOBAZAM [Concomitant]
     Active Substance: CLOBAZAM
     Indication: Occipital lobe epilepsy

REACTIONS (5)
  - Intentional product misuse [Unknown]
  - Throat irritation [Unknown]
  - Drug ineffective [Unknown]
  - Nausea [Unknown]
  - Dizziness [Unknown]
